FAERS Safety Report 15809424 (Version 2)
Quarter: 2019Q1

REPORT INFORMATION
  Report Type: Spontaneous
  Country: JP (occurrence: JP)
  Receive Date: 20190111
  Receipt Date: 20190128
  Transmission Date: 20190417
  Serious: Yes (Other)
  Sender: FDA-Public Use
  Company Number: JP-CONCORDIA PHARMACEUTICALS INC.-E2B_00012776

PATIENT
  Sex: Male

DRUGS (4)
  1. TAZOBACTAM/PIPERACILLIN [Concomitant]
     Active Substance: PIPERACILLIN SODIUM\TAZOBACTAM SODIUM
     Indication: URINARY TRACT INFECTION
  2. AMOXICILLIN. [Concomitant]
     Active Substance: AMOXICILLIN
  3. DOCETAXEL. [Suspect]
     Active Substance: DOCETAXEL
     Indication: PROSTATE CANCER
  4. PREDNISOLONE. [Suspect]
     Active Substance: PREDNISOLONE
     Indication: PROSTATE CANCER

REACTIONS (3)
  - Bacteraemia [Recovering/Resolving]
  - Helicobacter infection [Recovering/Resolving]
  - Nosocomial infection [Recovering/Resolving]
